FAERS Safety Report 20474701 (Version 1)
Quarter: 2022Q1

REPORT INFORMATION
  Report Type: Report from Study
  Country: US (occurrence: US)
  Receive Date: 20220215
  Receipt Date: 20220215
  Transmission Date: 20220424
  Serious: Yes (Other)
  Sender: FDA-Public Use
  Company Number: US-JAZZ-2022-US-000932

PATIENT
  Sex: Female

DRUGS (39)
  1. XYREM [Suspect]
     Active Substance: SODIUM OXYBATE
     Indication: Narcolepsy
     Dosage: 1.5 GRAM, BID
     Route: 048
     Dates: start: 200803, end: 200803
  2. XYREM [Suspect]
     Active Substance: SODIUM OXYBATE
     Indication: Somnolence
     Dosage: DOSE ADJUSTMENT
     Route: 048
     Dates: start: 200803, end: 200804
  3. XYREM [Suspect]
     Active Substance: SODIUM OXYBATE
     Indication: Cataplexy
     Dosage: 4.5 GRAM, BID
     Route: 048
     Dates: start: 200804, end: 200804
  4. XYREM [Suspect]
     Active Substance: SODIUM OXYBATE
     Dosage: 2.25 GRAM, BID
     Route: 048
     Dates: start: 200812, end: 200906
  5. XYREM [Suspect]
     Active Substance: SODIUM OXYBATE
     Dosage: 4.5 GRAM, BID
     Route: 048
     Dates: start: 200906, end: 200912
  6. XYREM [Suspect]
     Active Substance: SODIUM OXYBATE
     Dosage: 4.5 GRAM, BID
     Route: 048
     Dates: start: 201307, end: 201507
  7. XYREM [Suspect]
     Active Substance: SODIUM OXYBATE
     Dosage: 4.5 GRAM, BID
     Route: 048
     Dates: start: 201608, end: 201609
  8. XYREM [Suspect]
     Active Substance: SODIUM OXYBATE
     Dosage: 3 GRAM, TID
     Route: 048
     Dates: start: 201609
  9. MORPHINE SULFATE [Concomitant]
     Active Substance: MORPHINE SULFATE
     Dosage: 0000
     Dates: start: 20130729
  10. CYCLOBENZAPRINE [Concomitant]
     Active Substance: CYCLOBENZAPRINE
     Dosage: 0000
     Dates: start: 20130729
  11. ZOFRAN [Concomitant]
     Active Substance: ONDANSETRON HYDROCHLORIDE
     Dosage: 0000
     Dates: start: 20130729
  12. XEOMIN [Concomitant]
     Active Substance: INCOBOTULINUMTOXINA
     Dosage: 0000
     Dates: start: 20130728
  13. DIHYDROERGOTAMINE [Concomitant]
     Active Substance: DIHYDROERGOTAMINE
     Dosage: 0000
     Dates: start: 20130729
  14. SPRIX [Concomitant]
     Active Substance: KETOROLAC TROMETHAMINE
     Dosage: 0000
     Dates: start: 20140328
  15. TORSEMIDE [Concomitant]
     Active Substance: TORSEMIDE
     Dosage: 0000
     Dates: start: 20180209
  16. KLOR-CON M20 [Concomitant]
     Active Substance: POTASSIUM CHLORIDE
     Dosage: 0000
     Dates: start: 20160601
  17. LINZESS [Concomitant]
     Active Substance: LINACLOTIDE
     Dosage: 0000
     Dates: start: 20160401
  18. ZANAFLEX [Concomitant]
     Active Substance: TIZANIDINE HYDROCHLORIDE
     Dosage: 0000
     Dates: start: 20070413
  19. BOTOX [Concomitant]
     Active Substance: ONABOTULINUMTOXINA
     Dosage: 0000
     Dates: start: 20160501
  20. PREDNISONE [Concomitant]
     Active Substance: PREDNISONE
     Dosage: 0000
     Dates: start: 20170808
  21. SPIRONOLACTONE [Concomitant]
     Active Substance: SPIRONOLACTONE
     Dosage: 0000
     Dates: start: 20180917
  22. SPRINTEC [Concomitant]
     Active Substance: ETHINYL ESTRADIOL\NORGESTIMATE
     Dosage: 0000
     Dates: start: 20170818
  23. VYVANSE [Concomitant]
     Active Substance: LISDEXAMFETAMINE DIMESYLATE
     Dosage: 0000
     Dates: start: 20171205
  24. HYDROMORPHONE HCL [Concomitant]
     Active Substance: HYDROMORPHONE HYDROCHLORIDE
     Dosage: 0000
     Dates: start: 20180913
  25. BACLOFEN [Concomitant]
     Active Substance: BACLOFEN
     Dosage: 0000
     Dates: start: 20181106
  26. NYSTATIN [Concomitant]
     Active Substance: NYSTATIN
     Dosage: 0000
     Dates: start: 20190131
  27. AIMOVIG [Concomitant]
     Active Substance: ERENUMAB-AOOE
     Dosage: 0000
     Dates: start: 20180918
  28. DOXYCYCLINE HYCLATE [Concomitant]
     Active Substance: DOXYCYCLINE HYCLATE
     Dosage: 0000
     Dates: start: 20180301
  29. PANTOPRAZOLE SODIUM [Concomitant]
     Active Substance: PANTOPRAZOLE SODIUM
     Dosage: 0000
     Dates: start: 20171017
  30. RANITIDINE [Concomitant]
     Active Substance: RANITIDINE
     Dosage: 0000
     Dates: start: 20171017
  31. MONTELUKAST SODIUM [Concomitant]
     Active Substance: MONTELUKAST SODIUM
     Dosage: 0000
     Dates: start: 20180917
  32. BETAMETHASONE [Concomitant]
     Active Substance: BETAMETHASONE
     Dosage: 0000
     Dates: start: 20170627
  33. FLUOCINOLONE [Concomitant]
     Active Substance: FLUOCINOLONE
     Dosage: 0000
     Dates: start: 20180301
  34. ADAPALENE [Concomitant]
     Active Substance: ADAPALENE
     Dosage: 0000
     Dates: start: 20180912
  35. MEXILETINE [Concomitant]
     Active Substance: MEXILETINE
     Dosage: 0000
     Dates: start: 20190826
  36. MOTEGRITY [Concomitant]
     Active Substance: PRUCALOPRIDE SUCCINATE
     Dosage: 0000
     Dates: start: 20190826
  37. RELISTOR [Concomitant]
     Active Substance: METHYLNALTREXONE BROMIDE
     Dosage: 0000
     Dates: start: 20190827
  38. KETAMINE HYDROCHLORIDE [Concomitant]
     Active Substance: KETAMINE HYDROCHLORIDE
     Dosage: 0000
     Dates: start: 20190827
  39. GAMMAGARD [Concomitant]
     Active Substance: HUMAN IMMUNOGLOBULIN G
     Dosage: 0000
     Dates: start: 20191216

REACTIONS (3)
  - Bedridden [Recovering/Resolving]
  - Condition aggravated [Unknown]
  - Oedema [Unknown]
